FAERS Safety Report 15743654 (Version 6)
Quarter: 2019Q3

REPORT INFORMATION
  Report Type: Spontaneous
  Country: US (occurrence: US)
  Receive Date: 20181220
  Receipt Date: 20190828
  Transmission Date: 20191004
  Serious: Yes (Hospitalization, Other)
  Sender: FDA-Public Use
  Company Number: US-PFIZER INC-2018519206

PATIENT
  Age: 88 Year
  Sex: Female
  Weight: 56 kg

DRUGS (3)
  1. LYRICA [Suspect]
     Active Substance: PREGABALIN
     Indication: HERPES ZOSTER
     Dosage: 100 MG, 3X/DAY (100MG THREE TIMES A DAY (QUANTITY: 90)
     Route: 048
  2. LYRICA [Suspect]
     Active Substance: PREGABALIN
     Indication: NEUROPATHY PERIPHERAL
     Dosage: UNK, 1X/DAY (ONLY ONCE A DAY)
  3. LYRICA [Suspect]
     Active Substance: PREGABALIN
     Indication: CRANIAL NERVE DISORDER

REACTIONS (6)
  - Loss of personal independence in daily activities [Recovered/Resolved]
  - Hyperhidrosis [Recovered/Resolved]
  - Nervousness [Recovered/Resolved]
  - Withdrawal syndrome [Recovered/Resolved]
  - Pain [Recovered/Resolved]
  - Feeling cold [Unknown]

NARRATIVE: CASE EVENT DATE: 20181120
